FAERS Safety Report 5278361-3 (Version None)
Quarter: 2007Q1

REPORT INFORMATION
  Report Type: 
  Country: None (occurrence: None)
  Receive Date: 20070322
  Receipt Date: 20070315
  Transmission Date: 20070707
  Serious: Yes (Death, Hospitalization)
  Sender: FDA-Public Use
  Company Number: 2007SP002056

PATIENT
  Age: 76 Year
  Sex: Male

DRUGS (15)
  1. TEMOZOLOMIDE (S-P) (TEMOZOLOMIDE) [Suspect]
     Indication: GLIOMA
     Dosage: SEE IMAGE
     Dates: start: 20061206, end: 20061210
  2. TEMOZOLOMIDE (S-P) (TEMOZOLOMIDE) [Suspect]
     Indication: GLIOMA
     Dosage: SEE IMAGE
     Dates: start: 20070118, end: 20070122
  3. ZOPHREN (CON.) [Concomitant]
  4. MEDROL (CON.) [Concomitant]
  5. SOLUMEDROL (CON.) [Concomitant]
  6. CIFLOX (CON.) [Concomitant]
  7. FLAGYL (CON.) [Concomitant]
  8. DIANTALVIC (CON.) [Concomitant]
  9. NEURONTIN (CON.) [Concomitant]
  10. DIFFU K (CON.) [Concomitant]
  11. IMOVANE (CON.) [Concomitant]
  12. MOVICOL (CON.) [Concomitant]
  13. INEXIUM (CON.) [Concomitant]
  14. DAFALGAN (CON.) [Concomitant]
  15. MEDROL [Concomitant]

REACTIONS (14)
  - BALANCE DISORDER [None]
  - CARDIAC FLUTTER [None]
  - CONFUSIONAL STATE [None]
  - DEHYDRATION [None]
  - EPILEPSY [None]
  - FALL [None]
  - GRAND MAL CONVULSION [None]
  - MUSCULAR WEAKNESS [None]
  - NEOPLASM PROGRESSION [None]
  - NOSOCOMIAL INFECTION [None]
  - RENAL DISORDER [None]
  - RENAL IMPAIRMENT [None]
  - STAPHYLOCOCCAL SEPSIS [None]
  - URINARY INCONTINENCE [None]
